FAERS Safety Report 24098519 (Version 2)
Quarter: 2024Q3

REPORT INFORMATION
  Report Type: Spontaneous
  Country: US (occurrence: US)
  Receive Date: 20240716
  Receipt Date: 20240802
  Transmission Date: 20241017
  Serious: Yes (Hospitalization)
  Sender: TEVA
  Company Number: US-TEVA-VS-3217683

PATIENT
  Age: 42 Year
  Sex: Female

DRUGS (3)
  1. AMIODARONE [Suspect]
     Active Substance: AMIODARONE
     Indication: Ventricular tachycardia
     Route: 065
  2. LIDOCAINE [Suspect]
     Active Substance: LIDOCAINE
     Indication: Ventricular tachycardia
     Dosage: DOSAGE: INFUSION
     Route: 065
  3. SALINE [Suspect]
     Active Substance: SODIUM CHLORIDE
     Indication: Mammoplasty
     Dosage: SODIUM-CHLORIDE BREAST IMPLANTS ENCASED IN SILICONE
     Route: 065

REACTIONS (4)
  - Cardiac sarcoidosis [Unknown]
  - Drug ineffective [Unknown]
  - Ventricular tachycardia [Unknown]
  - Atrioventricular block complete [Unknown]
